FAERS Safety Report 8139575 (Version 2)
Quarter: 2014Q4

REPORT INFORMATION
  Report Type: Spontaneous
  Country: IT (occurrence: IT)
  Receive Date: 20110916
  Receipt Date: 20141219
  Transmission Date: 20150529
  Serious: No
  Sender: FDA-Public Use
  Company Number: PHHY2011IT79807

PATIENT
  Age: 53 Year
  Sex: Female
  Weight: 54 kg

DRUGS (2)
  1. IMATINIB [Suspect]
     Active Substance: IMATINIB
     Indication: CHRONIC MYELOID LEUKAEMIA
     Dosage: 400 MG, QD
     Route: 065
  2. IMATINIB [Suspect]
     Active Substance: IMATINIB
     Dosage: 600 MG, QD
     Route: 065
     Dates: start: 200802

REACTIONS (1)
  - Therapeutic response decreased [Unknown]
